FAERS Safety Report 6220399-3 (Version None)
Quarter: 2009Q2

REPORT INFORMATION
  Report Type: 
  Country: None (occurrence: None)
  Receive Date: 20090610
  Receipt Date: 20090603
  Transmission Date: 20091009
  Serious: Yes (Other)
  Sender: FDA-Public Use
  Company Number: US-BAXTER-2009BH008734

PATIENT
  Sex: Female

DRUGS (4)
  1. GAMMAGARD S/D [Suspect]
     Indication: IMMUNODEFICIENCY COMMON VARIABLE
     Route: 042
     Dates: end: 20090101
  2. GAMMAGARD S/D [Suspect]
     Route: 042
     Dates: start: 20090101, end: 20090101
  3. GAMMAGARD S/D [Suspect]
     Route: 042
     Dates: start: 20090101
  4. MULTI-VITAMINS [Concomitant]
     Route: 048

REACTIONS (3)
  - FALSE POSITIVE LABORATORY RESULT [None]
  - HERPES VIRUS INFECTION [None]
  - MIGRAINE [None]
